FAERS Safety Report 6435229-4 (Version None)
Quarter: 2009Q4

REPORT INFORMATION
  Report Type: 
  Country: None (occurrence: None)
  Receive Date: 20091110
  Receipt Date: 20091027
  Transmission Date: 20100525
  Serious: Yes (Hospitalization)
  Sender: FDA-Public Use
  Company Number: GB-MYLANLABS-2009S1018838

PATIENT
  Age: 58 Year
  Sex: Male

DRUGS (9)
  1. TERBINAFINE HCL [Suspect]
     Indication: ONYCHOMYCOSIS
     Dates: start: 20090906
  2. BISOPROLOL [Concomitant]
     Indication: DRUG USE FOR UNKNOWN INDICATION
     Route: 048
  3. LANSOPRAZOLE [Concomitant]
     Indication: DRUG USE FOR UNKNOWN INDICATION
     Route: 048
  4. ORAMORPH SR [Concomitant]
     Indication: BACK PAIN
     Route: 048
  5. PREGABALIN [Concomitant]
     Indication: BACK PAIN
     Route: 048
     Dates: end: 20090906
  6. QUININE SULPHATE [Concomitant]
     Indication: DRUG USE FOR UNKNOWN INDICATION
     Route: 048
  7. SIMVASTATIN [Concomitant]
     Indication: DRUG USE FOR UNKNOWN INDICATION
     Route: 048
  8. TENOXICAM [Concomitant]
     Indication: BACK PAIN
     Route: 048
     Dates: start: 19980101, end: 20090906
  9. TRAMADOL HCL [Concomitant]
     Indication: BACK PAIN
     Route: 048

REACTIONS (1)
  - PANCREATITIS [None]
